FAERS Safety Report 4436307-1 (Version None)
Quarter: 2004Q3

REPORT INFORMATION
  Report Type: 
  Country: None (occurrence: None)
  Receive Date: 20040830
  Receipt Date: 20040723
  Transmission Date: 20050211
  Serious: No
  Sender: FDA-Public Use
  Company Number: US-BRISTOL-MYERS SQUIBB COMPANY-12651345

PATIENT
  Age: 63 Year
  Sex: Female
  Weight: 53 kg

DRUGS (7)
  1. ERBITUX [Suspect]
     Indication: COLON CANCER METASTATIC
     Route: 042
     Dates: start: 20040709, end: 20040709
  2. ALOXI [Concomitant]
     Indication: PREMEDICATION
     Dates: start: 20040709, end: 20040709
  3. BENADRYL [Concomitant]
     Indication: PREMEDICATION
     Dates: start: 20040709, end: 20040709
  4. ATIVAN [Concomitant]
  5. CAMPTOSAR [Concomitant]
  6. PAXIL [Concomitant]
  7. PREMARIN [Concomitant]

REACTIONS (1)
  - HAIR GROWTH ABNORMAL [None]
